FAERS Safety Report 5581763-9 (Version None)
Quarter: 2008Q1

REPORT INFORMATION
  Report Type: 
  Country: None (occurrence: None)
  Receive Date: 20080104
  Receipt Date: 20071228
  Transmission Date: 20080703
  Serious: Yes (Hospitalization)
  Sender: FDA-Public Use
  Company Number: AU-MERCK-0712AUS00378

PATIENT
  Age: 72 Year
  Sex: Female
  Weight: 80 kg

DRUGS (4)
  1. FOSAMAX [Suspect]
     Indication: OSTEOPOROSIS
     Route: 048
     Dates: start: 20020101, end: 20070801
  2. FOSAMAX [Suspect]
     Route: 048
     Dates: start: 20070801
  3. MELOXICAM [Concomitant]
     Indication: ARTHRITIS
     Route: 048
  4. ACETAMINOPHEN [Concomitant]
     Indication: ANALGESIA
     Route: 065

REACTIONS (3)
  - BACK PAIN [None]
  - FALL [None]
  - LUMBAR VERTEBRAL FRACTURE [None]
